FAERS Safety Report 7166283-2 (Version None)
Quarter: 2010Q4

REPORT INFORMATION
  Report Type: 
  Country: None (occurrence: None)
  Receive Date: 20101216
  Receipt Date: 20101203
  Transmission Date: 20110411
  Serious: Yes (Hospitalization, Other)
  Sender: FDA-Public Use
  Company Number: US-ELI_LILLY_AND_COMPANY-US201007000881

PATIENT
  Sex: Female
  Weight: 99.32 kg

DRUGS (18)
  1. FORTEO [Suspect]
     Indication: OSTEOPOROSIS
     Dosage: 20 UG, DAILY (1/D)
  2. FORTEO [Suspect]
     Dosage: 20 UG, DAILY (1/D)
  3. FENTANYL-100 [Concomitant]
  4. PERCOCET [Concomitant]
  5. BENTYL [Concomitant]
  6. PROMETHAZINE [Concomitant]
  7. PREDNISONE [Concomitant]
  8. XANAX [Concomitant]
  9. PROTONIX [Concomitant]
  10. ACIDOPHILUS [Concomitant]
  11. VENTOLIN [Concomitant]
  12. SYNTHROID [Concomitant]
  13. ATIVAN [Concomitant]
  14. LEXAPRO [Concomitant]
  15. OXYGEN [Concomitant]
  16. POTASSIUM CHLORIDE [Concomitant]
  17. TORSEMIDE [Concomitant]
  18. ADVAIR [Concomitant]

REACTIONS (4)
  - CHRONIC OBSTRUCTIVE PULMONARY DISEASE [None]
  - ORGANISING PNEUMONIA [None]
  - PAIN [None]
  - URINARY TRACT INFECTION [None]
